FAERS Safety Report 7488679-1 (Version None)
Quarter: 2011Q2

REPORT INFORMATION
  Report Type: 
  Country: None (occurrence: None)
  Receive Date: 20110518
  Receipt Date: 20110509
  Transmission Date: 20111010
  Serious: Yes (Hospitalization)
  Sender: FDA-Public Use
  Company Number: B0718248A

PATIENT
  Age: 3 Month
  Sex: Male
  Weight: 4 kg

DRUGS (1)
  1. RANITIDINE HCL [Suspect]
     Dosage: 72MG PER DAY
     Route: 048
     Dates: start: 20110103, end: 20110124

REACTIONS (2)
  - HYPERSOMNIA [None]
  - OVERDOSE [None]
